FAERS Safety Report 19972959 (Version 1)
Quarter: 2021Q4

REPORT INFORMATION
  Report Type: Report from Study
  Country: None (occurrence: CO)
  Receive Date: 20211019
  Receipt Date: 20211019
  Transmission Date: 20220303
  Serious: Yes (Other)
  Sender: FDA-Public Use
  Company Number: CO-ABBVIE-21K-036-4124511-00

PATIENT
  Age: 53 Year
  Sex: Male

DRUGS (1)
  1. HUMIRA [Suspect]
     Active Substance: ADALIMUMAB
     Indication: Colitis ulcerative
     Route: 058
     Dates: start: 20180616

REACTIONS (4)
  - Pulmonary mass [Unknown]
  - Haemorrhoids [Unknown]
  - Osteoarthritis [Unknown]
  - Sacral pain [Unknown]

NARRATIVE: CASE EVENT DATE: 20210921
